FAERS Safety Report 21054989 (Version 1)
Quarter: 2022Q3

REPORT INFORMATION
  Report Type: Other
  Country: IE (occurrence: None)
  Receive Date: 20220707
  Receipt Date: 20220707
  Transmission Date: 20221027
  Serious: Yes (Other)
  Sender: FDA-Public Use
  Company Number: IE-ROCHE-3126528

PATIENT
  Sex: Female

DRUGS (1)
  1. TOCILIZUMAB [Suspect]
     Active Substance: TOCILIZUMAB
     Indication: Product used for unknown indication
     Dosage: WEEKLY
     Route: 058
     Dates: start: 20220627

REACTIONS (6)
  - Malaise [Unknown]
  - Vertigo [Unknown]
  - Back pain [Unknown]
  - Conjunctivitis [Unknown]
  - Cheilitis [Unknown]
  - Abdominal pain lower [Unknown]

NARRATIVE: CASE EVENT DATE: 20220627
